FAERS Safety Report 5528858-3 (Version None)
Quarter: 2007Q4

REPORT INFORMATION
  Report Type: 
  Country: None (occurrence: None)
  Receive Date: 20071113
  Receipt Date: 20071009
  Transmission Date: 20080405
  Serious: No
  Sender: FDA-Public Use
  Company Number: 200717119US

PATIENT
  Age: 46 Year
  Sex: Female

DRUGS (2)
  1. APIDRA [Suspect]
     Indication: TYPE 1 DIABETES MELLITUS
     Dosage: INJ
     Route: 042
  2. LANTUS [Concomitant]

REACTIONS (1)
  - DIARRHOEA [None]
